FAERS Safety Report 11631138 (Version 1)
Quarter: 2015Q4

REPORT INFORMATION
  Report Type: Report from Study
  Country: IN (occurrence: IN)
  Receive Date: 20151014
  Receipt Date: 20151014
  Transmission Date: 20160304
  Serious: Yes (Hospitalization)
  Sender: FDA-Public Use
  Company Number: IN-B.I. PHARMACEUTICALS,INC./RIDGEFIELD-2015-BI-56058BI

PATIENT
  Age: 70 Year
  Sex: Male
  Weight: 60.5 kg

DRUGS (6)
  1. TIOTROPIUM BROMIDE [Suspect]
     Active Substance: TIOTROPIUM BROMIDE
     Indication: CHRONIC OBSTRUCTIVE PULMONARY DISEASE
     Route: 048
  2. NEXPRO [Concomitant]
     Indication: ANTACID THERAPY
     Dosage: 40 MG
     Route: 048
     Dates: start: 20151002, end: 20151009
  3. ZIFI CV [Concomitant]
     Indication: BACTERIAL INFECTION
     Dosage: 400 MG
     Route: 048
     Dates: start: 20151005, end: 20151009
  4. BUDECORT [Concomitant]
     Active Substance: BUDESONIDE
     Indication: CHRONIC OBSTRUCTIVE PULMONARY DISEASE
     Dosage: 200 MCG
     Route: 055
     Dates: start: 20150916, end: 20151009
  5. BI 1744+TIOTROPIUM BROMIDE [Suspect]
     Active Substance: OLODATEROL\TIOTROPIUM BROMIDE
     Indication: CHRONIC OBSTRUCTIVE PULMONARY DISEASE
     Dosage: 2.5 MCG
     Route: 048
     Dates: start: 20150622, end: 20151010
  6. ASTHALIN [Concomitant]
     Active Substance: ALBUTEROL
     Indication: CHRONIC OBSTRUCTIVE PULMONARY DISEASE
     Dosage: 100 MCG
     Route: 055
     Dates: start: 20150622, end: 20151009

REACTIONS (1)
  - Chronic obstructive pulmonary disease [Not Recovered/Not Resolved]

NARRATIVE: CASE EVENT DATE: 20151009
